FAERS Safety Report 12778258 (Version 2)
Quarter: 2016Q4

REPORT INFORMATION
  Report Type: Report from Study
  Country: PT (occurrence: PT)
  Receive Date: 20160926
  Receipt Date: 20161023
  Transmission Date: 20170207
  Serious: Yes (Other)
  Sender: FDA-Public Use
  Company Number: PT-BEH-2016073610

PATIENT

DRUGS (1)
  1. HUMAN IMMUNOGLOBULIN (NON-COMPANY) [Suspect]
     Active Substance: HUMAN IMMUNOGLOBULIN G
     Indication: DERMATITIS ATOPIC
     Dosage: 1000 MG/KG, QMT
     Route: 042

REACTIONS (2)
  - Hepatotoxicity [Unknown]
  - Drug ineffective for unapproved indication [Unknown]
